FAERS Safety Report 6590971-X (Version None)
Quarter: 2010Q1

REPORT INFORMATION
  Report Type: 
  Country: None (occurrence: None)
  Receive Date: 20100212
  Receipt Date: 20100202
  Transmission Date: 20100710
  Serious: Yes (Other)
  Sender: FDA-Public Use
  Company Number: 2010S1000816

PATIENT
  Sex: Male

DRUGS (3)
  1. PHOSPHOSODA FLAVOR NOT SPECIFIED [Suspect]
     Indication: COLONOSCOPY
     Dosage: 90 ML; TOTAL; PO
     Route: 048
     Dates: start: 20060918
  2. DULCOLAX [Concomitant]
  3. OXYCODONE HCL EXTENDED-RELEASE [Concomitant]

REACTIONS (3)
  - ANAEMIA [None]
  - HYPERPARATHYROIDISM [None]
  - RENAL FAILURE [None]
